FAERS Safety Report 25729449 (Version 3)
Quarter: 2025Q4

REPORT INFORMATION
  Report Type: Report from Study
  Country: US (occurrence: None)
  Receive Date: 20250827
  Receipt Date: 20251209
  Transmission Date: 20260118
  Serious: Yes (Other)
  Sender: UCB
  Company Number: US-UCBSA-2025048396

PATIENT
  Age: 55 Year

DRUGS (5)
  1. BRIVARACETAM [Suspect]
     Active Substance: BRIVARACETAM
     Indication: Epilepsy
     Dosage: 150 MILLIGRAM, 2X/DAY (BID)
  2. BRIVARACETAM [Suspect]
     Active Substance: BRIVARACETAM
     Indication: Seizure
     Dosage: 75 MILLIGRAM, 2X/DAY (BID)
  3. NAYZILAM [Suspect]
     Active Substance: MIDAZOLAM
     Indication: Seizure
     Dosage: 5 MILLIGRAM, AS NEEDED
  4. NAYZILAM [Suspect]
     Active Substance: MIDAZOLAM
     Indication: Epilepsy
  5. EPIDIOLEX [Suspect]
     Active Substance: CANNABIDIOL
     Indication: Product used for unknown indication
     Dosage: UNK

REACTIONS (15)
  - Seizure [Unknown]
  - Abnormal sleep-related event [Not Recovered/Not Resolved]
  - Lacrimation increased [Not Recovered/Not Resolved]
  - Eye pruritus [Not Recovered/Not Resolved]
  - Vision blurred [Unknown]
  - Migraine [Unknown]
  - Memory impairment [Unknown]
  - Pruritus [Unknown]
  - Weight decreased [Unknown]
  - Decreased appetite [Unknown]
  - Diarrhoea [Unknown]
  - Depression [Unknown]
  - Muscle twitching [Unknown]
  - Fall [Unknown]
  - Overdose [Unknown]
